FAERS Safety Report 17711465 (Version 1)
Quarter: 2020Q2

REPORT INFORMATION
  Report Type: Spontaneous
  Country: US (occurrence: US)
  Receive Date: 20200424
  Receipt Date: 20200424
  Transmission Date: 20200714
  Serious: Yes (Death)
  Sender: FDA-Public Use
  Company Number: None

PATIENT
  Age: 64 Year
  Sex: Male
  Weight: 62.1 kg

DRUGS (6)
  1. VITAMIN D [Concomitant]
     Active Substance: VITAMIN D NOS
  2. CALCIUM [Concomitant]
     Active Substance: CALCIUM
  3. KEYTRUDA [Suspect]
     Active Substance: PEMBROLIZUMAB
     Indication: HEAD AND NECK CANCER
     Dosage: ?          QUANTITY:5 INJECTION(S);OTHER FREQUENCY:EVERY 3 WEEKS;?
     Route: 042
     Dates: start: 20200123, end: 20200409
  4. LOW DOSE ASPIRIN [Concomitant]
     Active Substance: ASPIRIN
  5. PEPCID [Concomitant]
     Active Substance: FAMOTIDINE
  6. FLOMAX [Concomitant]
     Active Substance: TAMSULOSIN HYDROCHLORIDE

REACTIONS (12)
  - Fall [None]
  - Visual impairment [None]
  - Blindness unilateral [None]
  - Infusion related reaction [None]
  - Rheumatoid arthritis [None]
  - Colour blindness [None]
  - White blood cell count increased [None]
  - Pain [None]
  - Sudden death [None]
  - Dizziness [None]
  - Eye pain [None]
  - Muscle strength abnormal [None]
